FAERS Safety Report 4816601-2 (Version None)
Quarter: 2005Q4

REPORT INFORMATION
  Report Type: 
  Country: None (occurrence: None)
  Receive Date: 20051028
  Receipt Date: 20051014
  Transmission Date: 20060501
  Serious: Yes (Death)
  Sender: FDA-Public Use
  Company Number: 2005S1010244

PATIENT
  Age: 63 Year
  Sex: Male

DRUGS (7)
  1. CLOZAPINE [Suspect]
     Indication: SCHIZOPHRENIA
     Dosage: 100 MG; QAM; ORAL; 200 MG; HS; ORAL
     Route: 048
     Dates: start: 20011201, end: 20051013
  2. CLOZAPINE [Suspect]
     Indication: SCHIZOPHRENIA
     Dosage: 100 MG; QAM; ORAL; 200 MG; HS; ORAL
     Route: 048
     Dates: start: 20011201, end: 20051013
  3. PAROXETINE HYDROCHLORIDE [Concomitant]
  4. LORAZEPAM [Concomitant]
  5. GLYCERYL TRINITRATE [Concomitant]
  6. OXYBUTYNIN HYDROCHLORIDE [Concomitant]
  7. SUCRALFATE [Concomitant]

REACTIONS (1)
  - PNEUMONIA [None]
